FAERS Safety Report 11748661 (Version 1)
Quarter: 2015Q4

REPORT INFORMATION
  Report Type: Spontaneous
  Country: US (occurrence: US)
  Receive Date: 20151117
  Receipt Date: 20151117
  Transmission Date: 20160304
  Serious: Yes (Other)
  Sender: FDA-Public Use
  Company Number: US-MYLANLABS-2015M1039964

PATIENT

DRUGS (8)
  1. VILAZODONE [Concomitant]
     Active Substance: VILAZODONE
     Indication: MAJOR DEPRESSION
     Route: 065
  2. ARIPIPRAZOLE. [Concomitant]
     Active Substance: ARIPIPRAZOLE
     Indication: MAJOR DEPRESSION
     Route: 065
  3. TRAZODONE [Concomitant]
     Active Substance: TRAZODONE HYDROCHLORIDE
     Indication: MAJOR DEPRESSION
     Route: 065
  4. LEVOMEFOLIC ACID [Concomitant]
     Indication: MAJOR DEPRESSION
     Route: 065
  5. KETAMINE [Suspect]
     Active Substance: KETAMINE
     Indication: MAJOR DEPRESSION
     Route: 050
     Dates: start: 201302
  6. DULOXETINE. [Concomitant]
     Active Substance: DULOXETINE
     Indication: MAJOR DEPRESSION
     Route: 065
  7. GABAPENTIN. [Concomitant]
     Active Substance: GABAPENTIN
     Indication: MAJOR DEPRESSION
     Route: 065
  8. BUSPIRONE [Concomitant]
     Active Substance: BUSPIRONE HYDROCHLORIDE
     Indication: MAJOR DEPRESSION
     Route: 065

REACTIONS (3)
  - Off label use [Unknown]
  - Major depression [Unknown]
  - No adverse event [Recovered/Resolved]
